FAERS Safety Report 24026480 (Version 2)
Quarter: 2025Q2

REPORT INFORMATION
  Report Type: Spontaneous
  Country: US (occurrence: US)
  Receive Date: 20240628
  Receipt Date: 20250621
  Transmission Date: 20250717
  Serious: No
  Sender: AUROBINDO
  Company Number: US-AUROBINDO-AUR-APL-2024-007184

PATIENT
  Age: 73 Year
  Sex: Male

DRUGS (1)
  1. AZELASTINE HYDROCHLORIDE [Suspect]
     Active Substance: AZELASTINE HYDROCHLORIDE
     Indication: Sinus congestion
     Dosage: UNK, TWO TIMES A DAY (01 TO 02 SPRAYS IN EACH  NOSTRIL TWICE DAILY AS NEEDED)
     Route: 045

REACTIONS (3)
  - Product dose omission issue [Unknown]
  - Device connection issue [Unknown]
  - Product leakage [Unknown]
